FAERS Safety Report 4925065-X (Version None)
Quarter: 2006Q1

REPORT INFORMATION
  Report Type: 
  Country: None (occurrence: None)
  Receive Date: 20060222
  Receipt Date: 20060207
  Transmission Date: 20060701
  Serious: Yes (Hospitalization)
  Sender: FDA-Public Use
  Company Number: US-2005-007359

PATIENT
  Age: 60 Year
  Sex: Female

DRUGS (2)
  1. BETAFERON(BETAFERON (SH Y 579E))(INTERFERON BETA - 1B) INJECTION, 250U [Suspect]
     Indication: RELAPSING-REMITTING MULTIPLE SCLEROSIS
     Dosage: SEE IMAGE
     Route: 058
     Dates: start: 19890217, end: 19931005
  2. BETAFERON(BETAFERON (SH Y 579E))(INTERFERON BETA - 1B) INJECTION, 250U [Suspect]
     Indication: RELAPSING-REMITTING MULTIPLE SCLEROSIS
     Dosage: SEE IMAGE
     Route: 058
     Dates: start: 20041201

REACTIONS (25)
  - ABNORMAL BEHAVIOUR [None]
  - APHASIA [None]
  - BACTERIURIA [None]
  - BLOOD CREATINE PHOSPHOKINASE INCREASED [None]
  - BLOOD PRESSURE INADEQUATELY CONTROLLED [None]
  - BLOOD PRESSURE SYSTOLIC INCREASED [None]
  - CONDITION AGGRAVATED [None]
  - CONFUSIONAL STATE [None]
  - COORDINATION ABNORMAL [None]
  - DISORIENTATION [None]
  - FALL [None]
  - INFLUENZA LIKE ILLNESS [None]
  - MENTAL STATUS CHANGES [None]
  - MULTIPLE SCLEROSIS [None]
  - NEUROGENIC BLADDER [None]
  - PYREXIA [None]
  - PYURIA [None]
  - REFUSAL OF TREATMENT BY PATIENT [None]
  - SCAR [None]
  - SKIN DISORDER [None]
  - TROPONIN INCREASED [None]
  - UPPER RESPIRATORY TRACT INFECTION [None]
  - URINARY TRACT INFECTION [None]
  - UTHOFF'S PHENOMENON [None]
  - WHITE BLOOD CELL COUNT INCREASED [None]
